FAERS Safety Report 4615919-6 (Version None)
Quarter: 2005Q1

REPORT INFORMATION
  Report Type: 
  Country: None (occurrence: None)
  Receive Date: 20050318
  Receipt Date: 20050315
  Transmission Date: 20050727
  Serious: Yes (Life-Threatening)
  Sender: FDA-Public Use
  Company Number: A044-002-005505

PATIENT
  Age: 83 Year
  Sex: Female
  Weight: 62 kg

DRUGS (4)
  1. ARICEPT [Suspect]
     Indication: DEMENTIA
     Dosage: 10 MG, 1 IN 1 D, ORAL
     Route: 048
     Dates: start: 20030101
  2. COZAAR [Concomitant]
  3. PRAVASINE (PRAVASTATIN) [Concomitant]
  4. EMCONCOR MITIS (BISOPROLOL) [Concomitant]

REACTIONS (4)
  - BRONCHOSPASM [None]
  - C-REACTIVE PROTEIN INCREASED [None]
  - LUNG INFECTION [None]
  - RESPIRATORY TRACT INFECTION [None]
